FAERS Safety Report 14097017 (Version 1)
Quarter: 2017Q4

REPORT INFORMATION
  Report Type: Spontaneous
  Country: US (occurrence: None)
  Receive Date: 20171016
  Receipt Date: 20171016
  Transmission Date: 20180321
  Serious: Yes (Hospitalization)
  Sender: FDA-Public Use
  Company Number: None

PATIENT
  Age: 75 Year
  Sex: Male
  Weight: 112 kg

DRUGS (1)
  1. TAMSULOSIN [Suspect]
     Active Substance: TAMSULOSIN
     Indication: HYPERTENSION
     Route: 048
     Dates: start: 20161207, end: 20170228

REACTIONS (3)
  - Dizziness [None]
  - Orthostatic hypotension [None]
  - Fall [None]

NARRATIVE: CASE EVENT DATE: 20170228
